FAERS Safety Report 14566759 (Version 4)
Quarter: 2018Q4

REPORT INFORMATION
  Report Type: Report from Study
  Country: US (occurrence: US)
  Receive Date: 20180223
  Receipt Date: 20181224
  Transmission Date: 20190204
  Serious: Yes (Other)
  Sender: FDA-Public Use
  Company Number: PHHY2018US030894

PATIENT
  Age: 37 Year
  Sex: Female

DRUGS (1)
  1. GILENYA [Suspect]
     Active Substance: FINGOLIMOD HYDROCHLORIDE
     Indication: MULTIPLE SCLEROSIS
     Dosage: UNK, QD
     Route: 048

REACTIONS (10)
  - Back pain [Unknown]
  - Anaemia [Unknown]
  - Ear infection [Recovered/Resolved]
  - Burning sensation [Unknown]
  - Upper respiratory tract infection [Recovered/Resolved]
  - Aspartate aminotransferase decreased [Unknown]
  - Upper respiratory tract infection [Recovered/Resolved]
  - Alanine aminotransferase decreased [Unknown]
  - Lymphocyte count decreased [Unknown]
  - White blood cell count decreased [Unknown]

NARRATIVE: CASE EVENT DATE: 20170722
